FAERS Safety Report 18510346 (Version 1)
Quarter: 2020Q4

REPORT INFORMATION
  Report Type: Spontaneous
  Country: US (occurrence: US)
  Receive Date: 20201114
  Receipt Date: 20201114
  Transmission Date: 20210114
  Serious: Yes (Hospitalization)
  Sender: FDA-Public Use
  Company Number: None

PATIENT
  Age: 11 Year
  Sex: Female
  Weight: 40.7 kg

DRUGS (5)
  1. METHOTREXATE 12 MG [Suspect]
     Active Substance: METHOTREXATE
  2. CYCLOPHOSPHAMIDE. [Suspect]
     Active Substance: CYCLOPHOSPHAMIDE
  3. GLEEVEC [Suspect]
     Active Substance: IMATINIB MESYLATE
  4. MERCAPTOPURINE ? [Suspect]
     Active Substance: MERCAPTOPURINE
  5. CYTARABINE 50MG [Suspect]
     Active Substance: CYTARABINE

REACTIONS (6)
  - Pyrexia [None]
  - Rhabdomyolysis [None]
  - Renal disorder [None]
  - Neutropenia [None]
  - Back pain [None]
  - Therapy interrupted [None]

NARRATIVE: CASE EVENT DATE: 20201027
